FAERS Safety Report 11595612 (Version 1)
Quarter: 2015Q4

REPORT INFORMATION
  Report Type: Spontaneous
  Country: US (occurrence: US)
  Receive Date: 20151006
  Receipt Date: 20151006
  Transmission Date: 20160304
  Serious: No
  Sender: FDA-Public Use
  Company Number: US-LEO PHARMA-236164

PATIENT
  Age: 64 Year
  Sex: Female

DRUGS (1)
  1. PICATO [Suspect]
     Active Substance: INGENOL MEBUTATE
     Indication: ACTINIC KERATOSIS
     Route: 061
     Dates: start: 20150804

REACTIONS (8)
  - Application site vesicles [Not Recovered/Not Resolved]
  - Application site scab [Not Recovered/Not Resolved]
  - Drug administered at inappropriate site [Unknown]
  - Incorrect dose administered [Unknown]
  - Application site papules [Not Recovered/Not Resolved]
  - Application site erythema [Recovered/Resolved]
  - Application site reaction [Not Recovered/Not Resolved]
  - Application site pain [Recovered/Resolved]

NARRATIVE: CASE EVENT DATE: 20150804
